FAERS Safety Report 24636087 (Version 1)
Quarter: 2024Q4

REPORT INFORMATION
  Report Type: Spontaneous
  Country: US (occurrence: US)
  Receive Date: 20241119
  Receipt Date: 20241119
  Transmission Date: 20250114
  Serious: No
  Sender: AUROBINDO
  Company Number: US-AUROBINDO-AUR-APL-2024-046172

PATIENT
  Age: 16 Year
  Sex: Female

DRUGS (2)
  1. ISOTRETINOIN [Suspect]
     Active Substance: ISOTRETINOIN
     Indication: Acne
     Dosage: 30 MILLIGRAM, TWO TIMES A DAY (THE PATIENT WAS TAKING 30MG, TWICE A DAY FOR A TOTAL OF 60 MG DAILY)
     Route: 065
     Dates: start: 202404, end: 202407
  2. ISOTRETINOIN [Suspect]
     Active Substance: ISOTRETINOIN
     Dosage: 30 MILLIGRAM, TWO TIMES A DAY
     Route: 065
     Dates: start: 20240828

REACTIONS (1)
  - Product dose omission issue [Unknown]

NARRATIVE: CASE EVENT DATE: 20240530
